APPROVED DRUG PRODUCT: PRONESTYL-SR
Active Ingredient: PROCAINAMIDE HYDROCHLORIDE
Strength: 500MG
Dosage Form/Route: TABLET, EXTENDED RELEASE;ORAL
Application: A087361 | Product #001
Applicant: APOTHECON INC DIV BRISTOL MYERS SQUIBB
Approved: Approved Prior to Jan 1, 1982 | RLD: No | RS: No | Type: DISCN